FAERS Safety Report 10436078 (Version 1)
Quarter: 2014Q3

REPORT INFORMATION
  Report Type: Spontaneous
  Country: US (occurrence: None)
  Receive Date: 20140905
  Receipt Date: 20140905
  Transmission Date: 20150326
  Serious: Yes (Other)
  Sender: FDA-Public Use
  Company Number: None

PATIENT
  Age: 71 Year
  Sex: Male
  Weight: 93.9 kg

DRUGS (3)
  1. MELOXICAM 15MG [Suspect]
     Active Substance: MELOXICAM
     Indication: PROCEDURAL PAIN
     Route: 048
     Dates: start: 20140811, end: 20140818
  2. LISINOPRIL. [Concomitant]
     Active Substance: LISINOPRIL
  3. PRAVASTATIN [Concomitant]
     Active Substance: PRAVASTATIN\PRAVASTATIN SODIUM

REACTIONS (1)
  - Colitis [None]

NARRATIVE: CASE EVENT DATE: 20140818
